FAERS Safety Report 6581595-9 (Version None)
Quarter: 2010Q1

REPORT INFORMATION
  Report Type: 
  Country: None (occurrence: None)
  Receive Date: 20100215
  Receipt Date: 20100205
  Transmission Date: 20100710
  Serious: Yes (Hospitalization)
  Sender: FDA-Public Use
  Company Number: US-JNJFOC-20100203691

PATIENT
  Sex: Male
  Weight: 88.45 kg

DRUGS (6)
  1. DURAGESIC-100 [Suspect]
     Indication: BACK PAIN
     Route: 062
  2. DURAGESIC-100 [Suspect]
     Route: 062
  3. DURAGESIC-100 [Suspect]
     Route: 062
  4. FENTANYL CITRATE [Suspect]
     Indication: BACK PAIN
     Route: 062
  5. FLEXERIL [Concomitant]
     Indication: MUSCLE SPASMS
     Route: 048
  6. ROBAXIN [Concomitant]
     Indication: MUSCLE SPASMS
     Route: 048

REACTIONS (4)
  - INADEQUATE ANALGESIA [None]
  - INTERVERTEBRAL DISC PROTRUSION [None]
  - MUSCLE SPASMS [None]
  - PRODUCT QUALITY ISSUE [None]
